FAERS Safety Report 4500294-8 (Version None)
Quarter: 2004Q3

REPORT INFORMATION
  Report Type: 
  Country: None (occurrence: None)
  Receive Date: 20040927
  Receipt Date: 20040716
  Transmission Date: 20050211
  Serious: No
  Sender: FDA-Public Use
  Company Number: USA040772851

PATIENT
  Sex: Male

DRUGS (3)
  1. STRATTERA [Suspect]
     Dosage: 25 MG
     Dates: start: 20040701, end: 20040701
  2. CELEBREX [Concomitant]
  3. PROSCAR [Concomitant]

REACTIONS (4)
  - DRY MOUTH [None]
  - EJACULATION DISORDER [None]
  - POLLAKIURIA [None]
  - URINARY RETENTION [None]
